FAERS Safety Report 20067141 (Version 13)
Quarter: 2024Q1

REPORT INFORMATION
  Report Type: Report from Study
  Country: CZ (occurrence: CZ)
  Receive Date: 20211115
  Receipt Date: 20240117
  Transmission Date: 20240409
  Serious: Yes (Hospitalization, Disabling, Other)
  Sender: FDA-Public Use
  Company Number: CZ-TAKEDA-2021TEU009202

PATIENT
  Age: 76 Year
  Sex: Male

DRUGS (19)
  1. DOXAZOSIN [Suspect]
     Active Substance: DOXAZOSIN MESYLATE
     Indication: Orthostatic hypotension
     Dosage: 4 MILLIGRAM, ONCE A DAY (ONCE IN THE EVENING)
     Route: 065
  2. DOXAZOSIN [Suspect]
     Active Substance: DOXAZOSIN MESYLATE
     Indication: Hypertension
     Dosage: 4 MILLIGRAM, ONCE A DAY (AFTER THE SURGERY DOXAZOSIN WAS ADMINISTRATED IN THE MORNING)
     Route: 065
  3. DOXAZOSIN [Suspect]
     Active Substance: DOXAZOSIN MESYLATE
     Indication: Benign prostatic hyperplasia
  4. METOPROLOL [Interacting]
     Active Substance: METOPROLOL
     Indication: Product used for unknown indication
     Dosage: 50 MILLIGRAM, ONCE A DAY (25 MILLIGRAM, BID)
     Route: 048
  5. METOPROLOL [Interacting]
     Active Substance: METOPROLOL
     Dosage: 50 MILLIGRAM, ONCE A DAY (25 MILLIGRAM, BID)
     Route: 048
  6. METOPROLOL [Interacting]
     Active Substance: METOPROLOL
     Dosage: 100 MILLIGRAM, ONCE A DAY (50 MILLIGRAM, BID)
     Route: 048
  7. METOPROLOL [Interacting]
     Active Substance: METOPROLOL
     Dosage: 25 MILLIGRAM, ONCE A DAY
     Route: 065
  8. METOPROLOL [Interacting]
     Active Substance: METOPROLOL
     Dosage: 25 MILLIGRAM, TWO TIMES A DAY
     Route: 065
  9. METOPROLOL [Interacting]
     Active Substance: METOPROLOL
     Dosage: 50 MILLIGRAM, TWO TIMES A DAY
     Route: 065
  10. TAMSULOSIN [Interacting]
     Active Substance: TAMSULOSIN
     Indication: Benign prostatic hyperplasia
     Dosage: 0.5 MILLIGRAM, ONCE A DAY
     Route: 065
     Dates: start: 20190129, end: 20190201
  11. AMLODIPINE BESYLATE [Concomitant]
     Active Substance: AMLODIPINE BESYLATE
     Indication: Product used for unknown indication
     Dosage: 10 MILLIGRAM, ONCE A DAY (QD), (10 MG, DAILY (TBL ONCE AT NOON)
     Route: 065
  12. AMIODARONE [Concomitant]
     Active Substance: AMIODARONE
     Indication: Atrial fibrillation
     Dosage: UNK
     Route: 065
  13. ATORVASTATIN [Concomitant]
     Active Substance: ATORVASTATIN
     Indication: Atrial fibrillation
     Dosage: 10 MILLIGRAM, ONCE A DAY (ONCE IN THE MORNING)
     Route: 065
  14. BISOPROLOL [Concomitant]
     Active Substance: BISOPROLOL\BISOPROLOL FUMARATE
     Indication: Product used for unknown indication
     Dosage: 2.5 MILLIGRAM, ONCE A DAY (QD) (ONCE IN THE MORNING)
     Route: 065
  15. INDAPAMIDE [Concomitant]
     Active Substance: INDAPAMIDE
     Indication: Product used for unknown indication
     Dosage: 1.25 MILLIGRAM, ONCE A DAY (QD) (ONCE IN THE MORNING)
     Route: 065
  16. IRBESARTAN [Concomitant]
     Active Substance: IRBESARTAN
     Indication: Product used for unknown indication
     Dosage: 150 MILLIGRAM, ONCE A DAY (ONCE IN THE EVENING)
     Route: 065
  17. METFORMIN [Concomitant]
     Active Substance: METFORMIN HYDROCHLORIDE
     Indication: Product used for unknown indication
     Dosage: 500 MILLIGRAM, ONCE A DAY (ONCE IN THE EVENING)(METFORMIN DISCONTINUED ON HOSPITAL ADMISSION)
     Route: 065
  18. NADROPARIN [Concomitant]
     Active Substance: NADROPARIN
     Indication: Prophylaxis
     Dosage: 0.4 MILLILITER (AFTER THE SURGERY DOXAZOSIN WAS ADMINISTRATED IN THE MORNING),AT 06:00 PM (PROPHYLAX
     Route: 058
  19. ZOLPIDEM [Concomitant]
     Active Substance: ZOLPIDEM TARTRATE
     Indication: Product used for unknown indication
     Dosage: 10 MILLIGRAM, ONCE A DAY (AT BEDTIME AS NECESSARY)
     Route: 065

REACTIONS (12)
  - Cardiac operation [Unknown]
  - Loss of consciousness [Recovered/Resolved]
  - Orthostatic hypotension [Recovered/Resolved]
  - Hypotension [Recovered/Resolved]
  - Presyncope [Recovered/Resolved]
  - Bradycardia [Recovered/Resolved]
  - Circulatory collapse [Unknown]
  - Atrial fibrillation [Unknown]
  - Drug interaction [Recovered/Resolved]
  - Wrong schedule [Unknown]
  - Incorrect dose administered [Unknown]
  - Circumstance or information capable of leading to device use error [Recovered/Resolved]

NARRATIVE: CASE EVENT DATE: 20190101
